FAERS Safety Report 4620683-0 (Version None)
Quarter: 2005Q1

REPORT INFORMATION
  Report Type: 
  Country: None (occurrence: None)
  Receive Date: 20050322
  Receipt Date: 20050309
  Transmission Date: 20050727
  Serious: Yes (Other)
  Sender: FDA-Public Use
  Company Number: HQWYE733501MAR05

PATIENT
  Age: 3 Year
  Sex: Male

DRUGS (6)
  1. BENEFIX [Suspect]
     Indication: HAEMOPHILIA
     Dosage: SEE IMAGE
     Dates: start: 20000901, end: 20030501
  2. BENEFIX [Suspect]
     Indication: PROPHYLAXIS
     Dosage: SEE IMAGE
     Dates: start: 20000901, end: 20030501
  3. BENEFIX [Suspect]
     Indication: HAEMOPHILIA
     Dosage: SEE IMAGE
     Dates: start: 20040129, end: 20050207
  4. BENEFIX [Suspect]
     Indication: PROPHYLAXIS
     Dosage: SEE IMAGE
     Dates: start: 20040129, end: 20050207
  5. BENEFIX [Suspect]
     Indication: HAEMOPHILIA
     Dosage: SEE IMAGE
     Dates: start: 20050207
  6. BENEFIX [Suspect]
     Indication: PROPHYLAXIS
     Dosage: SEE IMAGE
     Dates: start: 20050207

REACTIONS (2)
  - ANTI FACTOR IX ANTIBODY POSITIVE [None]
  - DRUG HYPERSENSITIVITY [None]
